FAERS Safety Report 19174971 (Version 3)
Quarter: 2021Q2

REPORT INFORMATION
  Report Type: Report from Study
  Country: AU (occurrence: AU)
  Receive Date: 20210423
  Receipt Date: 20210630
  Transmission Date: 20210717
  Serious: Yes (Hospitalization)
  Sender: FDA-Public Use
  Company Number: AU-PFIZER INC-2021439367

PATIENT
  Age: 86 Year
  Sex: Male
  Weight: 64 kg

DRUGS (13)
  1. APIXABAN [Concomitant]
     Active Substance: APIXABAN
     Indication: DEEP VEIN THROMBOSIS
     Dosage: TWICE A DAY
     Route: 048
     Dates: start: 202007
  2. CARBOPLATIN. [Suspect]
     Active Substance: CARBOPLATIN
     Dosage: 390 MG
     Dates: start: 20210329
  3. AVELUMAB [Suspect]
     Active Substance: AVELUMAB
     Dosage: 660 MG
     Route: 042
     Dates: start: 20210226
  4. AZACITIDINE. [Suspect]
     Active Substance: AZACITIDINE
     Dosage: 70 MG
     Dates: start: 20210326
  5. PARACETAMOL [Concomitant]
     Active Substance: ACETAMINOPHEN
     Indication: PAIN
     Dosage: PRN
     Route: 048
     Dates: start: 2019
  6. PREGABALIN. [Concomitant]
     Active Substance: PREGABALIN
     Indication: PAIN
     Dosage: TWICE A DAY
     Route: 048
     Dates: start: 20210306
  7. DENOSUMAB [Concomitant]
     Active Substance: DENOSUMAB
     Indication: METASTASES TO BONE
     Dosage: Q6M
     Dates: start: 2019
  8. MOVICOL [Concomitant]
     Active Substance: POLYETHYLENE GLYCOL 3350\POTASSIUM CHLORIDE\SODIUM BICARBONATE\SODIUM CHLORIDE
     Indication: PROPHYLAXIS
     Dosage: 2 SACHETS
     Route: 048
     Dates: start: 20210329
  9. AVELUMAB [Suspect]
     Active Substance: AVELUMAB
     Indication: MALIGNANT MELANOMA
     Dosage: 660 MG
     Route: 042
     Dates: start: 20201204
  10. AZACITIDINE. [Suspect]
     Active Substance: AZACITIDINE
     Indication: MALIGNANT MELANOMA
     Dosage: 70 MG
     Dates: start: 20200928
  11. PANTOPRAZOLE [Concomitant]
     Active Substance: PANTOPRAZOLE
     Indication: GASTROOESOPHAGEAL REFLUX DISEASE
     Dosage: 40 MG, 1X/DAY
     Route: 048
     Dates: start: 2008
  12. TARGIN [Concomitant]
     Active Substance: NALOXONE HYDROCHLORIDE\OXYCODONE HYDROCHLORIDE
     Indication: PAIN
     Dosage: 10/5 MG,BD
     Route: 048
     Dates: start: 20210329
  13. CARBOPLATIN. [Suspect]
     Active Substance: CARBOPLATIN
     Indication: MALIGNANT MELANOMA
     Dosage: 380 MG
     Dates: start: 20201006

REACTIONS (1)
  - Cholecystitis [Recovered/Resolved]

NARRATIVE: CASE EVENT DATE: 20210411
